FAERS Safety Report 6359547-3 (Version None)
Quarter: 2009Q3

REPORT INFORMATION
  Report Type: 
  Country: None (occurrence: None)
  Receive Date: 20090917
  Receipt Date: 20090914
  Transmission Date: 20100115
  Serious: Yes (Hospitalization, Other)
  Sender: FDA-Public Use
  Company Number: US-ELI_LILLY_AND_COMPANY-US200909003058

PATIENT
  Sex: Female

DRUGS (9)
  1. HUMALOG [Suspect]
     Dosage: 50 U, UNKNOWN
     Dates: start: 20090913, end: 20090913
  2. HUMALOG [Suspect]
     Dosage: 10 U, OTHER
  3. LANTUS [Concomitant]
     Dosage: 50 U, EACH EVENING
  4. EFFEXOR [Concomitant]
     Dosage: 150 MG, DAILY (1/D)
  5. METFORMIN HCL [Concomitant]
     Dosage: 1000 MG, 2/D
  6. LOVASTATIN [Concomitant]
     Dosage: 40 MG, DAILY (1/D)
  7. ENALAPRIL MALEATE [Concomitant]
     Dosage: 10 MG, DAILY (1/D)
  8. PLAVIX [Concomitant]
     Dosage: 75 MG, DAILY (1/D)
  9. MULTI-VITAMIN [Concomitant]
     Dosage: 1 D/F, DAILY (1/D)

REACTIONS (8)
  - ABASIA [None]
  - BALANCE DISORDER [None]
  - BLOOD GLUCOSE DECREASED [None]
  - CEREBROVASCULAR ACCIDENT [None]
  - DYSSTASIA [None]
  - FATIGUE [None]
  - LIMB DISCOMFORT [None]
  - WRONG DRUG ADMINISTERED [None]
